FAERS Safety Report 5121228-1 (Version None)
Quarter: 2006Q4

REPORT INFORMATION
  Report Type: 
  Country: None (occurrence: None)
  Receive Date: 20061002
  Receipt Date: 20060921
  Transmission Date: 20070319
  Serious: Yes (Hospitalization)
  Sender: FDA-Public Use
  Company Number: US200609003196

PATIENT
  Age: 54 Year
  Sex: Female
  Weight: 124.3 kg

DRUGS (1)
  1. ZYPREXA [Suspect]
     Dosage: ORAL
     Route: 048
     Dates: start: 19970101

REACTIONS (6)
  - CARDIAC FAILURE CONGESTIVE [None]
  - DIABETES MELLITUS [None]
  - DIARRHOEA [None]
  - DRUG WITHDRAWAL SYNDROME [None]
  - PNEUMONIA [None]
  - RENAL FAILURE [None]
